FAERS Safety Report 9925268 (Version 1)
Quarter: 2014Q1

REPORT INFORMATION
  Report Type: Spontaneous
  Country: US (occurrence: None)
  Receive Date: 20140225
  Receipt Date: 20140225
  Transmission Date: 20141002
  Serious: Yes (Other)
  Sender: FDA-Public Use
  Company Number: None

PATIENT
  Sex: Female
  Weight: 52.16 kg

DRUGS (1)
  1. ANASTROZOLE [Suspect]
     Indication: BREAST CANCER
     Dosage: 1 TABLET  1 DAILY
     Dates: start: 20130311, end: 20131022

REACTIONS (12)
  - Myalgia [None]
  - Bone pain [None]
  - Pain in extremity [None]
  - Pain in extremity [None]
  - Groin pain [None]
  - Pelvic pain [None]
  - Musculoskeletal pain [None]
  - Back pain [None]
  - Movement disorder [None]
  - Eyelid oedema [None]
  - Diplopia [None]
  - Pain in extremity [None]
